FAERS Safety Report 18118527 (Version 1)
Quarter: 2020Q3

REPORT INFORMATION
  Report Type: Other
  Country: FR (occurrence: FR)
  Receive Date: 20200806
  Receipt Date: 20200806
  Transmission Date: 20201103
  Serious: Yes (Hospitalization)
  Sender: FDA-Public Use
  Company Number: FR-CADILA HEALTHCARE LIMITED-FR-ZYDUS-054101

PATIENT

DRUGS (2)
  1. DUROGESIC [Suspect]
     Active Substance: FENTANYL
     Indication: URINARY TRACT PAIN
     Dosage: 75 MICROGRAM
     Route: 062
     Dates: start: 20200616
  2. GABAPENTINE [Suspect]
     Active Substance: GABAPENTIN
     Indication: URINARY TRACT PAIN
     Dosage: 1200 MILLIGRAM
     Route: 048
     Dates: start: 20200620

REACTIONS (3)
  - Vomiting [Recovered/Resolved]
  - Fall [Recovered/Resolved]
  - Vertigo [Recovered/Resolved]

NARRATIVE: CASE EVENT DATE: 20200622
